FAERS Safety Report 4941131-7 (Version None)
Quarter: 2006Q1

REPORT INFORMATION
  Report Type: 
  Country: None (occurrence: None)
  Receive Date: 20060313
  Receipt Date: 20060127
  Transmission Date: 20060701
  Serious: Yes (Hospitalization)
  Sender: FDA-Public Use
  Company Number: S200600023

PATIENT
  Age: 24 Year
  Sex: Male

DRUGS (5)
  1. AMOXICILLIN [Suspect]
     Indication: CELLULITIS
     Dosage: 250MG TWICE PER DAY
     Route: 048
     Dates: start: 20040515, end: 20040518
  2. UNASYN [Suspect]
     Indication: CELLULITIS
     Dosage: 3G PER DAY
     Route: 042
     Dates: start: 20040515, end: 20040515
  3. LOXONIN [Concomitant]
     Indication: CELLULITIS
     Route: 048
     Dates: start: 20040515, end: 20040516
  4. COLD MEDICINE (UNSPECIFIED) [Concomitant]
     Indication: DRUG USE FOR UNKNOWN INDICATION
     Route: 048
     Dates: start: 20040512
  5. CRAVIT [Concomitant]
     Indication: CELLULITIS
     Route: 048
     Dates: start: 20040518, end: 20040519

REACTIONS (7)
  - ACUTE GENERALISED EXANTHEMATOUS PUSTULOSIS [None]
  - ERYTHEMA [None]
  - HAIR GROWTH ABNORMAL [None]
  - HEPATIC FUNCTION ABNORMAL [None]
  - PRURITUS [None]
  - PYREXIA [None]
  - RASH PUSTULAR [None]
